FAERS Safety Report 5935995-8 (Version None)
Quarter: 2008Q4

REPORT INFORMATION
  Report Type: 
  Country: None (occurrence: None)
  Receive Date: 20081030
  Receipt Date: 20081023
  Transmission Date: 20090506
  Serious: Yes (Other)
  Sender: FDA-Public Use
  Company Number: PHHO2008FR12021

PATIENT
  Sex: Female
  Weight: 61 kg

DRUGS (2)
  1. RAD 666 RAD+TAB+PTR [Suspect]
     Indication: RENAL TRANSPLANT
     Dosage: 1 MG, QD
     Dates: start: 20061030
  2. NEORAL [Suspect]
     Indication: RENAL TRANSPLANT
     Dosage: 120 MG, QD
     Dates: start: 20061030

REACTIONS (2)
  - FALL [None]
  - FOOT FRACTURE [None]
